FAERS Safety Report 9073100 (Version 1)
Quarter: 2013Q1

REPORT INFORMATION
  Report Type: Report from Study
  Country: US (occurrence: US)
  Receive Date: 20130129
  Receipt Date: 20130129
  Transmission Date: 20140127
  Serious: No
  Sender: FDA-Public Use
  Company Number: US-ABBOTT-12P-163-0923423-00

PATIENT
  Age: 43 Year
  Sex: Female
  Weight: 61.29 kg

DRUGS (9)
  1. HUMIRA 40 MG/0.8 ML PEN [Suspect]
     Indication: RHEUMATOID ARTHRITIS
     Dates: start: 20120226
  2. TRAZODONE [Suspect]
     Indication: INSOMNIA
  3. PREDNISONE [Concomitant]
     Indication: RHEUMATOID ARTHRITIS
     Dosage: 10 MG QD
  4. TYLENOL [Concomitant]
     Indication: PAIN
  5. PROZAC [Concomitant]
     Indication: DEPRESSION
  6. XANAX [Concomitant]
     Indication: PRODUCT USED FOR UNKNOWN INDICATION
  7. LIBRAX [Concomitant]
     Indication: COELIAC DISEASE
  8. LIBRAX [Concomitant]
     Indication: INFLAMMATORY BOWEL DISEASE
  9. SEASONIQUE [Concomitant]
     Indication: CONTRACEPTION

REACTIONS (7)
  - Throat tightness [Recovered/Resolved]
  - Psychomotor hyperactivity [Recovered/Resolved]
  - Infection [Recovered/Resolved]
  - Blood urine present [Recovered/Resolved]
  - Pyrexia [Recovered/Resolved]
  - Nasopharyngitis [Recovered/Resolved]
  - Insomnia [Recovered/Resolved]
